FAERS Safety Report 6810251-4 (Version None)
Quarter: 2010Q2

REPORT INFORMATION
  Report Type: 
  Country: None (occurrence: None)
  Receive Date: 20100630
  Receipt Date: 20100617
  Transmission Date: 20101027
  Serious: Yes (Other)
  Sender: FDA-Public Use
  Company Number: US-MYLANLABS-2010S1010781

PATIENT
  Age: 69 Year
  Sex: Female

DRUGS (1)
  1. FENOFIBRATE [Suspect]
     Indication: DYSLIPIDAEMIA
     Dosage: 145MG

REACTIONS (1)
  - NEUROPATHY PERIPHERAL [None]
